FAERS Safety Report 4600247-5 (Version None)
Quarter: 2005Q1

REPORT INFORMATION
  Report Type: 
  Country: None (occurrence: None)
  Receive Date: 20050307
  Receipt Date: 20050304
  Transmission Date: 20050727
  Serious: Yes (Other)
  Sender: FDA-Public Use
  Company Number: US-GLAXOSMITHKLINE-A0548378A

PATIENT
  Age: 21 Year
  Sex: Female

DRUGS (1)
  1. ESKALITH CR [Suspect]
     Indication: BIPOLAR I DISORDER
     Dosage: 900MG PER DAY
     Route: 048

REACTIONS (2)
  - CONDITION AGGRAVATED [None]
  - MANIA [None]
